FAERS Safety Report 4617445-7 (Version None)
Quarter: 2005Q1

REPORT INFORMATION
  Report Type: 
  Country: None (occurrence: None)
  Receive Date: 20050324
  Receipt Date: 20050317
  Transmission Date: 20050727
  Serious: Yes (Hospitalization)
  Sender: FDA-Public Use
  Company Number: US-KINGPHARMUSA00001-K200500382

PATIENT
  Age: 36 Year
  Sex: Female

DRUGS (1)
  1. INTAL [Suspect]
     Indication: ASTHMA
     Dosage: UNK, BID
     Dates: start: 20040101

REACTIONS (4)
  - ARRESTED LABOUR [None]
  - DRUG EXPOSURE DURING PREGNANCY [None]
  - PREMATURE LABOUR [None]
  - THREATENED LABOUR [None]
